FAERS Safety Report 14942559 (Version 1)
Quarter: 2018Q2

REPORT INFORMATION
  Report Type: Spontaneous
  Country: FR (occurrence: FR)
  Receive Date: 20180528
  Receipt Date: 20180528
  Transmission Date: 20180711
  Serious: Yes (Other)
  Sender: FDA-Public Use
  Company Number: FR-TEVA-2018-FR-897080

PATIENT
  Age: 62 Year
  Sex: Male

DRUGS (40)
  1. METHOTREXATE. [Suspect]
     Active Substance: METHOTREXATE
     Indication: CENTRAL NERVOUS SYSTEM LYMPHOMA
     Dosage: UNK
     Route: 042
     Dates: start: 20150105
  2. METHOTREXATE. [Suspect]
     Active Substance: METHOTREXATE
     Dosage: UNK
     Route: 042
     Dates: start: 20141126
  3. ETOPOSIDE. [Suspect]
     Active Substance: ETOPOSIDE
     Indication: CENTRAL NERVOUS SYSTEM LYMPHOMA
     Route: 042
     Dates: start: 20150709
  4. ARACYTINE [Suspect]
     Active Substance: CYTARABINE
     Route: 042
     Dates: start: 20150611
  5. ARACYTINE [Suspect]
     Active Substance: CYTARABINE
     Route: 042
     Dates: start: 20150204
  6. NEUPOGEN [Suspect]
     Active Substance: FILGRASTIM
     Route: 051
     Dates: start: 20141030
  7. NEULASTA [Suspect]
     Active Substance: PEGFILGRASTIM
     Route: 058
     Dates: start: 20150710
  8. IFOSFAMIDE. [Suspect]
     Active Substance: IFOSFAMIDE
     Indication: CENTRAL NERVOUS SYSTEM LYMPHOMA
     Dosage: UNK
     Route: 042
     Dates: start: 20150709
  9. CYCLOPHOSPHAMIDE. [Concomitant]
     Active Substance: CYCLOPHOSPHAMIDE
     Dosage: 5400 MG, (AT DAY-3 AND DAY-2)
     Route: 042
     Dates: start: 201508
  10. NATULAN [Suspect]
     Active Substance: PROCARBAZINE HYDROCHLORIDE
     Indication: CENTRAL NERVOUS SYSTEM LYMPHOMA
     Dosage: UNK
     Route: 048
     Dates: start: 20141030
  11. NATULAN [Suspect]
     Active Substance: PROCARBAZINE HYDROCHLORIDE
     Route: 048
     Dates: start: 20150105
  12. NATULAN [Suspect]
     Active Substance: PROCARBAZINE HYDROCHLORIDE
     Route: 048
     Dates: start: 20141114
  13. NEULASTA [Suspect]
     Active Substance: PEGFILGRASTIM
     Indication: PROPHYLAXIS
     Dosage: UNK
     Route: 058
     Dates: start: 20150610
  14. IFOSFAMIDE. [Suspect]
     Active Substance: IFOSFAMIDE
     Route: 042
     Dates: start: 20150610
  15. ZARZIO [Concomitant]
     Active Substance: FILGRASTIM
     Indication: FEBRILE BONE MARROW APLASIA
     Dosage: UNK
     Dates: start: 201507
  16. METHOTREXATE. [Suspect]
     Active Substance: METHOTREXATE
     Dosage: UNK
     Route: 042
     Dates: start: 20141003
  17. CARBOPLATIN. [Suspect]
     Active Substance: CARBOPLATIN
     Indication: CENTRAL NERVOUS SYSTEM LYMPHOMA
     Dosage: UNK
     Route: 042
     Dates: start: 20150611
  18. ETOPOSIDE. [Suspect]
     Active Substance: ETOPOSIDE
     Indication: ANGIODYSPLASIA
     Dosage: UNK
     Route: 042
     Dates: start: 20150708
  19. VINCRISTINE [Suspect]
     Active Substance: VINCRISTINE
     Indication: CENTRAL NERVOUS SYSTEM LYMPHOMA
     Dosage: UNK
     Route: 042
     Dates: start: 20141114
  20. UROMITEXAN [Suspect]
     Active Substance: MESNA
     Dosage: UNK
     Route: 042
     Dates: start: 20150710
  21. NEUPOGEN [Suspect]
     Active Substance: FILGRASTIM
     Route: 051
     Dates: start: 20150105
  22. BUSULFAN. [Concomitant]
     Active Substance: BUSULFAN
     Dosage: 288 MILLIGRAM DAILY; 72 MG, QID (AT DAY-6 AND DAY-5)
     Route: 042
     Dates: start: 201508
  23. ARANESP [Concomitant]
     Active Substance: DARBEPOETIN ALFA
     Indication: FEBRILE BONE MARROW APLASIA
     Dosage: UNK
     Dates: start: 201507
  24. METHOTREXATE. [Suspect]
     Active Substance: METHOTREXATE
     Dosage: UNK
     Route: 042
     Dates: start: 20141030
  25. ETOPOSIDE. [Suspect]
     Active Substance: ETOPOSIDE
     Route: 042
     Dates: start: 20150611
  26. BUSULFAN. [Concomitant]
     Active Substance: BUSULFAN
     Dosage: 144 MILLIGRAM DAILY; 72 MG, BID (AT DAY-4)
     Route: 042
     Dates: start: 201508
  27. VINCRISTINE [Suspect]
     Active Substance: VINCRISTINE
     Route: 042
     Dates: start: 20150105
  28. VINCRISTINE [Suspect]
     Active Substance: VINCRISTINE
     Route: 042
     Dates: start: 20141003
  29. ARACYTINE [Suspect]
     Active Substance: CYTARABINE
     Indication: CENTRAL NERVOUS SYSTEM LYMPHOMA
     Dosage: UNK
     Route: 042
     Dates: start: 20150610
  30. ARACYTINE [Suspect]
     Active Substance: CYTARABINE
     Route: 042
     Dates: start: 20150205
  31. NEUPOGEN [Suspect]
     Active Substance: FILGRASTIM
     Indication: PROPHYLAXIS
     Dosage: UNK
     Route: 051
     Dates: start: 20141003
  32. RITUXIMAB. [Suspect]
     Active Substance: RITUXIMAB
     Indication: CENTRAL NERVOUS SYSTEM LYMPHOMA
     Dosage: UNK
     Dates: start: 20150610, end: 20150610
  33. ETOPOSIDE. [Suspect]
     Active Substance: ETOPOSIDE
     Route: 042
     Dates: start: 20150610
  34. VINCRISTINE [Suspect]
     Active Substance: VINCRISTINE
     Route: 042
     Dates: start: 20141030
  35. NATULAN [Suspect]
     Active Substance: PROCARBAZINE HYDROCHLORIDE
     Route: 048
     Dates: start: 20141003
  36. NEUPOGEN [Suspect]
     Active Substance: FILGRASTIM
     Route: 051
     Dates: start: 20141114
  37. AMIODARONE [Concomitant]
     Active Substance: AMIODARONE
     Indication: ARRHYTHMIA
     Dosage: UNK
     Dates: start: 201510
  38. THIOTEPA. [Concomitant]
     Active Substance: THIOTEPA
     Dosage: 525 MG, (DAY-9 TO DAY-7)
     Route: 042
     Dates: start: 201508
  39. ARACYTINE [Suspect]
     Active Substance: CYTARABINE
     Route: 042
     Dates: start: 20141003
  40. UROMITEXAN [Suspect]
     Active Substance: MESNA
     Indication: CENTRAL NERVOUS SYSTEM LYMPHOMA
     Dosage: UNK
     Route: 042
     Dates: start: 20150610

REACTIONS (1)
  - Angiodysplasia [Not Recovered/Not Resolved]

NARRATIVE: CASE EVENT DATE: 20150608
